FAERS Safety Report 11094588 (Version 4)
Quarter: 2015Q3

REPORT INFORMATION
  Report Type: Spontaneous
  Country: US (occurrence: US)
  Receive Date: 20150506
  Receipt Date: 20150814
  Transmission Date: 20151125
  Serious: No
  Sender: FDA-Public Use
  Company Number: US-PFIZER INC-2015141255

PATIENT
  Sex: Male
  Weight: 137 kg

DRUGS (1)
  1. PHENELZINE SULFATE. [Suspect]
     Active Substance: PHENELZINE SULFATE
     Indication: DEPRESSION
     Dosage: 15 MG, UNK (3 (AM), 2 (PM), 3 (7PM))
     Route: 048
     Dates: start: 20080114

REACTIONS (1)
  - Drug ineffective [Recovered/Resolved]
